FAERS Safety Report 4386560-8 (Version None)
Quarter: 2004Q2

REPORT INFORMATION
  Report Type: 
  Country: None (occurrence: None)
  Receive Date: 20040623
  Receipt Date: 20040610
  Transmission Date: 20050107
  Serious: Yes (Death, Hospitalization)
  Sender: FDA-Public Use
  Company Number: 2004031867

PATIENT
  Age: 3 Year
  Sex: Male
  Weight: 10 kg

DRUGS (19)
  1. AZITHROMYCIN [Suspect]
     Indication: PNEUMONIA MYCOPLASMAL
     Dosage: 100 MG (100 MG, 1 IN 1 D), INTRAVENOUS
     Route: 042
     Dates: start: 20040318, end: 20040322
  2. HERBAL PREPARATION INGREDIENTS UNKNOWN (HERBAL PREPARATION INGREDIENTS [Concomitant]
  3. IMIPENEM (IMIPENEM) [Concomitant]
  4. MIDAZOLAM (MIDAZOLAM) [Concomitant]
  5. MORPHINE [Concomitant]
  6. SALBUTAMOL (SALBUTAMOL) [Concomitant]
  7. COMBIVENT [Concomitant]
  8. BUDESONIDE (BUDESONIDE) [Concomitant]
  9. HYDROCORTISONE [Concomitant]
  10. VANCOMYCIN [Concomitant]
  11. RANITIDINE [Concomitant]
  12. CEFUROXIME [Concomitant]
  13. AMIKACIN [Concomitant]
  14. DOPAMINE HCL [Concomitant]
  15. ACETYLCYSTEINE [Concomitant]
  16. FUROSEMIDE [Concomitant]
  17. PHYTONADIONE [Concomitant]
  18. LACTULOSE [Concomitant]
  19. SALBUTAMOL (SALBUTAMOL) [Concomitant]

REACTIONS (6)
  - ACINETOBACTER INFECTION [None]
  - ATRIOVENTRICULAR BLOCK COMPLETE [None]
  - BRADYCARDIA [None]
  - CIRCULATORY COLLAPSE [None]
  - CULTURE POSITIVE [None]
  - HYPOTENSION [None]
